FAERS Safety Report 10064306 (Version 2)
Quarter: 2014Q2

REPORT INFORMATION
  Report Type: Spontaneous
  Country: US (occurrence: US)
  Receive Date: 20140408
  Receipt Date: 20140414
  Transmission Date: 20141212
  Serious: Yes (Other)
  Sender: FDA-Public Use
  Company Number: US-RB-064739-14

PATIENT
  Age: 33 Year
  Sex: Female

DRUGS (1)
  1. MUCINEX DM MAXIMUM STRENGTH [Suspect]
     Indication: PRODUCT USED FOR UNKNOWN INDICATION
     Dosage: LAST TOOK ON 02-APR-2014; AMOUNT USED: 4 TABLETS
     Route: 048
     Dates: start: 20140331

REACTIONS (3)
  - Haemorrhoids [Not Recovered/Not Resolved]
  - Bronchitis [Not Recovered/Not Resolved]
  - Rectal haemorrhage [Not Recovered/Not Resolved]
